FAERS Safety Report 5501035-8 (Version None)
Quarter: 2007Q4

REPORT INFORMATION
  Report Type: 
  Country: None (occurrence: None)
  Receive Date: 20071029
  Receipt Date: 20071024
  Transmission Date: 20080405
  Serious: Yes (Death, Hospitalization)
  Sender: FDA-Public Use
  Company Number: PHBS2007NO17755

PATIENT
  Age: 85 Year
  Sex: Female

DRUGS (4)
  1. IBUX [Suspect]
     Indication: MYALGIA
     Route: 065
  2. PREDNISOLONE [Suspect]
     Indication: MYALGIA
     Dosage: 10 MG/DAY
     Route: 065
  3. ZANTAC [Concomitant]
     Indication: DYSPEPSIA
  4. VOLTAREN [Suspect]
     Indication: MYALGIA
     Route: 065

REACTIONS (18)
  - ANURIA [None]
  - BLOOD CREATININE INCREASED [None]
  - C-REACTIVE PROTEIN INCREASED [None]
  - CARDIAC FAILURE [None]
  - COMPUTERISED TOMOGRAM ABNORMAL [None]
  - DIASTOLIC DYSFUNCTION [None]
  - DYSPEPSIA [None]
  - EJECTION FRACTION DECREASED [None]
  - HAEMOGLOBIN DECREASED [None]
  - HEPATIC CYST [None]
  - HIATUS HERNIA [None]
  - MITRAL VALVE INCOMPETENCE [None]
  - ORGAN FAILURE [None]
  - PEPTIC ULCER PERFORATION [None]
  - RENAL CYST [None]
  - TACHYCARDIA [None]
  - TRICUSPID VALVE INCOMPETENCE [None]
  - WHITE BLOOD CELL COUNT INCREASED [None]
